FAERS Safety Report 8878783 (Version 2)
Quarter: 2013Q1

REPORT INFORMATION
  Report Type: Spontaneous
  Country: BR (occurrence: BR)
  Receive Date: 20121026
  Receipt Date: 20130311
  Transmission Date: 20140127
  Serious: No
  Sender: FDA-Public Use
  Company Number: PHHY2012BR095748

PATIENT
  Sex: Male
  Weight: 90 kg

DRUGS (1)
  1. TEGRETOL [Suspect]
     Indication: PAIN
     Dosage: 1 DF, DAILY
     Route: 048

REACTIONS (2)
  - Fear [Not Recovered/Not Resolved]
  - Anxiety [Not Recovered/Not Resolved]
